FAERS Safety Report 10350537 (Version 1)
Quarter: 2014Q3

REPORT INFORMATION
  Report Type: Spontaneous
  Country: US (occurrence: None)
  Receive Date: 20140728
  Receipt Date: 20140728
  Transmission Date: 20150326
  Serious: Yes (Disabling)
  Sender: FDA-Public Use
  Company Number: None

PATIENT
  Age: 45 Year
  Sex: Female
  Weight: 81.65 kg

DRUGS (1)
  1. LISINOPRIL. [Suspect]
     Active Substance: LISINOPRIL
     Indication: BLOOD PRESSURE INCREASED
     Dosage: 30 ONCE DAILY TAKEN BY MOUTH
     Route: 048
     Dates: start: 20130831, end: 20130909

REACTIONS (12)
  - Incontinence [None]
  - Gastrointestinal inflammation [None]
  - Nephrolithiasis [None]
  - Blood pressure increased [None]
  - Hepatic steatosis [None]
  - Diabetes mellitus [None]
  - Fatigue [None]
  - Bladder disorder [None]
  - Cough [None]
  - Diarrhoea [None]
  - Hepatic enzyme increased [None]
  - Cholelithiasis [None]
